FAERS Safety Report 23059622 (Version 3)
Quarter: 2023Q4

REPORT INFORMATION
  Report Type: Spontaneous
  Country: FR (occurrence: FR)
  Receive Date: 20231012
  Receipt Date: 20231201
  Transmission Date: 20240109
  Serious: Yes (Other)
  Sender: FDA-Public Use
  Company Number: FR-SA-SAC20231011001595

PATIENT
  Age: 78 Year
  Sex: Male

DRUGS (4)
  1. DUPIXENT [Suspect]
     Active Substance: DUPILUMAB
     Indication: Asthma
     Dosage: 200 MG
     Route: 058
     Dates: start: 20211210
  2. BILASTINE [Concomitant]
     Active Substance: BILASTINE
  3. AUGMENTIN [Concomitant]
     Active Substance: AMOXICILLIN\CLAVULANATE POTASSIUM
  4. BECLOMETHASONE DIPROPIONATE\FORMOTEROL FUMARATE\GLYCOPYRROLATE [Concomitant]
     Active Substance: BECLOMETHASONE DIPROPIONATE\FORMOTEROL FUMARATE\GLYCOPYRROLATE

REACTIONS (8)
  - Hypoxia [Recovering/Resolving]
  - Diaphragmatic paralysis [Recovering/Resolving]
  - Bronchiectasis [Recovering/Resolving]
  - Lung disorder [Recovering/Resolving]
  - Lumbar spinal stenosis [Recovering/Resolving]
  - Ulcerative gastritis [Recovering/Resolving]
  - COVID-19 [Unknown]
  - Atelectasis [Recovering/Resolving]

NARRATIVE: CASE EVENT DATE: 20220620
